FAERS Safety Report 8165485-6 (Version None)
Quarter: 2012Q1

REPORT INFORMATION
  Report Type: 
  Country: None (occurrence: None)
  Receive Date: 20120227
  Receipt Date: 20120201
  Transmission Date: 20120608
  Serious: No
  Sender: FDA-Public Use
  Company Number: US-MYLANLABS-2011S1026238

PATIENT
  Age: 39 Year
  Sex: Female
  Weight: 53.07 kg

DRUGS (2)
  1. METOPROLOL TARTRATE [Suspect]
     Indication: BLOOD PRESSURE INCREASED
     Route: 048
     Dates: start: 20111116, end: 20111201
  2. PRILOSEC [Concomitant]
     Indication: GASTRIC ULCER

REACTIONS (5)
  - ABDOMINAL PAIN [None]
  - FREQUENT BOWEL MOVEMENTS [None]
  - WEIGHT DECREASED [None]
  - HAEMORRHOIDAL HAEMORRHAGE [None]
  - MELAENA [None]
